FAERS Safety Report 14187585 (Version 1)
Quarter: 2017Q4

REPORT INFORMATION
  Report Type: Spontaneous
  Country: US (occurrence: US)
  Receive Date: 20171114
  Receipt Date: 20171114
  Transmission Date: 20180321
  Serious: No
  Sender: FDA-Public Use
  Company Number: US-BAUSCH-BL-2017-019449

PATIENT
  Age: 72 Year
  Sex: Female

DRUGS (2)
  1. TRETINOIN CREAM 0.1% [Suspect]
     Active Substance: TRETINOIN
     Dosage: AT BED TIME
     Route: 065
     Dates: start: 20170608
  2. TRETINOIN CREAM 0.1% [Suspect]
     Active Substance: TRETINOIN
     Indication: PRODUCT USED FOR UNKNOWN INDICATION
     Route: 065

REACTIONS (2)
  - Skin reaction [Unknown]
  - Drug ineffective [Not Recovered/Not Resolved]

NARRATIVE: CASE EVENT DATE: 20170608
